FAERS Safety Report 6691517-8 (Version None)
Quarter: 2010Q2

REPORT INFORMATION
  Report Type: 
  Country: None (occurrence: None)
  Receive Date: 20100422
  Receipt Date: 20100415
  Transmission Date: 20101027
  Serious: Yes (Other)
  Sender: FDA-Public Use
  Company Number: GB-BAYER-201020120GPV

PATIENT
  Age: 36 Year
  Sex: Female
  Weight: 56 kg

DRUGS (4)
  1. SORAFENIB [Suspect]
     Indication: DRUG USE FOR UNKNOWN INDICATION
     Dates: start: 20091211, end: 20100312
  2. SORAFENIB [Suspect]
     Dates: start: 20100402
  3. SORAFENIB [Suspect]
     Dates: start: 20100408
  4. CIPROFLOXACIN [Concomitant]
     Indication: DRUG USE FOR UNKNOWN INDICATION
     Route: 048
     Dates: start: 20100128

REACTIONS (2)
  - DEVICE OCCLUSION [None]
  - HEPATIC FUNCTION ABNORMAL [None]
